FAERS Safety Report 23195226 (Version 1)
Quarter: 2023Q4

REPORT INFORMATION
  Report Type: Spontaneous
  Country: IT (occurrence: IT)
  Receive Date: 20231117
  Receipt Date: 20231117
  Transmission Date: 20240110
  Serious: No
  Sender: FDA-Public Use
  Company Number: IT-ALKEM LABORATORIES LIMITED-IT-ALKEM-2023-01111

PATIENT
  Age: 17 Year
  Sex: Male

DRUGS (8)
  1. OLANZAPINE [Suspect]
     Active Substance: OLANZAPINE
     Indication: Schizophreniform disorder
     Dosage: 15 MILLIGRAM, QD (INCREASING IT TO 20 MG/DAY AFTER 5 DAYS)
     Route: 048
  2. OLANZAPINE [Suspect]
     Active Substance: OLANZAPINE
     Dosage: 300 MILLIGRAM, EVERY 3 WEEKS, LONG-ACTING INJECTION
     Route: 065
  3. NORDAZEPAM [Concomitant]
     Active Substance: NORDAZEPAM
     Indication: Schizophreniform disorder
     Dosage: 2 MILLIGRAM, QD (PER DAY)
     Route: 042
  4. PROMAZINE [Concomitant]
     Active Substance: PROMAZINE
     Indication: Schizophreniform disorder
     Dosage: 50 MILLIGRAM, QD (PER DAY)
     Route: 042
  5. ETANERCEPT [Concomitant]
     Active Substance: ETANERCEPT
     Indication: Juvenile idiopathic arthritis
     Dosage: 50 MILLIGRAM, ONCE WEEKLY
     Route: 058
  6. FOLIC ACID [Concomitant]
     Active Substance: FOLIC ACID
     Indication: Juvenile idiopathic arthritis
     Dosage: 5 MILLIGRAM, QD (PER DAY)
     Route: 048
  7. METHOTREXATE [Concomitant]
     Active Substance: METHOTREXATE
     Indication: Juvenile idiopathic arthritis
     Dosage: 7.5 MILLIGRAM, ONCE WEEKLY
     Route: 030
  8. SULFASALAZINE [Concomitant]
     Active Substance: SULFASALAZINE
     Indication: Juvenile idiopathic arthritis
     Dosage: 1.5 MILLIGRAM, QD (PER DAY)
     Route: 048

REACTIONS (3)
  - Rash [Recovered/Resolved]
  - Aspartate aminotransferase increased [Recovered/Resolved]
  - Alanine aminotransferase increased [Recovered/Resolved]
